FAERS Safety Report 5206488-0 (Version None)
Quarter: 2007Q1

REPORT INFORMATION
  Report Type: 
  Country: None (occurrence: None)
  Receive Date: 20070111
  Receipt Date: 20070109
  Transmission Date: 20070707
  Serious: Yes (Hospitalization, Disabling)
  Sender: FDA-Public Use
  Company Number: US-BRISTOL-MYERS SQUIBB COMPANY-13605514

PATIENT
  Age: 46 Year
  Sex: Male

DRUGS (16)
  1. REYATAZ [Suspect]
     Indication: HIV INFECTION
     Route: 048
     Dates: end: 20061120
  2. EPIVIR [Concomitant]
  3. VIDEX [Concomitant]
  4. NORVIR [Concomitant]
  5. VALTREX [Concomitant]
  6. ASPIRIN [Concomitant]
  7. BENAZEPRIL HCL [Concomitant]
  8. PRAVASTATIN SODIUM [Concomitant]
  9. PROPECIA [Concomitant]
  10. ZOFRAN [Concomitant]
  11. MARINOL [Concomitant]
  12. VIAGRA [Concomitant]
  13. TEMAZEPAM [Concomitant]
  14. VICODIN [Concomitant]
  15. MULTI-VITAMIN [Concomitant]
  16. LAXATIVES [Concomitant]

REACTIONS (2)
  - BLOOD CREATININE INCREASED [None]
  - NEPHROLITHIASIS [None]
